FAERS Safety Report 25676574 (Version 2)
Quarter: 2025Q3

REPORT INFORMATION
  Report Type: Spontaneous
  Country: BR (occurrence: BR)
  Receive Date: 20250813
  Receipt Date: 20250822
  Transmission Date: 20251020
  Serious: Yes (Hospitalization, Other)
  Sender: PFIZER
  Company Number: BR-PFIZER INC-PV202500097559

PATIENT
  Age: 66 Year
  Sex: Female

DRUGS (5)
  1. TALIGLUCERASE ALFA [Suspect]
     Active Substance: TALIGLUCERASE ALFA
     Indication: Gaucher^s disease
     Route: 042
     Dates: start: 2014
  2. LEVOTHYROXINE SODIUM [Concomitant]
     Active Substance: LEVOTHYROXINE SODIUM
  3. AMITRIPTYLINE [Concomitant]
     Active Substance: AMITRIPTYLINE
  4. SIMVASTATIN [Concomitant]
     Active Substance: SIMVASTATIN
  5. PREGABALIN [Concomitant]
     Active Substance: PREGABALIN

REACTIONS (2)
  - Myocardial infarction [Unknown]
  - Cardiac arrest [Unknown]

NARRATIVE: CASE EVENT DATE: 20250731
